FAERS Safety Report 24836832 (Version 1)
Quarter: 2025Q1

REPORT INFORMATION
  Report Type: Spontaneous
  Country: US (occurrence: US)
  Receive Date: 20250113
  Receipt Date: 20250113
  Transmission Date: 20250409
  Serious: Yes (Hospitalization, Other)
  Sender: BAXTER
  Company Number: US-BAXTER-2025BAX009838

PATIENT
  Sex: Female
  Weight: 58 kg

DRUGS (14)
  1. CYCLOPHOSPHAMIDE [Suspect]
     Active Substance: CYCLOPHOSPHAMIDE
     Indication: Philadelphia chromosome negative
     Route: 065
     Dates: start: 20241113, end: 20241116
  2. CYCLOPHOSPHAMIDE [Suspect]
     Active Substance: CYCLOPHOSPHAMIDE
     Indication: B-cell type acute leukaemia
  3. DOXORUBICIN [Suspect]
     Active Substance: DOXORUBICIN
     Indication: Philadelphia chromosome negative
     Route: 065
     Dates: start: 20241116, end: 20241116
  4. DOXORUBICIN [Suspect]
     Active Substance: DOXORUBICIN
     Indication: B-cell type acute leukaemia
  5. CYTARABINE [Suspect]
     Active Substance: CYTARABINE
     Indication: Philadelphia chromosome negative
     Route: 065
     Dates: start: 20241121, end: 20241121
  6. CYTARABINE [Suspect]
     Active Substance: CYTARABINE
     Indication: B-cell type acute leukaemia
  7. VINCRISTINE SULFATE [Suspect]
     Active Substance: VINCRISTINE SULFATE
     Indication: Philadelphia chromosome negative
     Route: 065
     Dates: start: 20241113, end: 20241120
  8. VINCRISTINE SULFATE [Suspect]
     Active Substance: VINCRISTINE SULFATE
     Indication: B-cell type acute leukaemia
  9. METHOTREXATE SODIUM [Suspect]
     Active Substance: METHOTREXATE SODIUM
     Indication: Philadelphia chromosome negative
     Route: 065
     Dates: start: 20241114, end: 20241114
  10. METHOTREXATE SODIUM [Suspect]
     Active Substance: METHOTREXATE SODIUM
     Indication: B-cell type acute leukaemia
  11. RITUXIMAB [Suspect]
     Active Substance: RITUXIMAB
     Indication: Philadelphia chromosome negative
     Route: 065
     Dates: start: 20241113
  12. RITUXIMAB [Suspect]
     Active Substance: RITUXIMAB
     Indication: B-cell type acute leukaemia
  13. DEXAMETHASONE [Suspect]
     Active Substance: DEXAMETHASONE
     Indication: Philadelphia chromosome negative
     Route: 065
     Dates: start: 20241113, end: 20241124
  14. DEXAMETHASONE [Suspect]
     Active Substance: DEXAMETHASONE
     Indication: B-cell type acute leukaemia

REACTIONS (5)
  - Lower gastrointestinal haemorrhage [Recovered/Resolved]
  - Rectal haemorrhage [Unknown]
  - Abdominal pain [Unknown]
  - Occult blood positive [Unknown]
  - Diverticulitis [Unknown]

NARRATIVE: CASE EVENT DATE: 20241124
